FAERS Safety Report 19770651 (Version 1)
Quarter: 2021Q3

REPORT INFORMATION
  Report Type: Spontaneous
  Country: GB (occurrence: GB)
  Receive Date: 20210901
  Receipt Date: 20210901
  Transmission Date: 20211014
  Serious: Yes (Life-Threatening, Hospitalization, Other)
  Sender: FDA-Public Use
  Company Number: GB-LUPIN PHARMACEUTICALS INC.-2021-16039

PATIENT
  Age: 22 Year
  Sex: Female

DRUGS (1)
  1. TRIMETHOPRIM. [Suspect]
     Active Substance: TRIMETHOPRIM
     Indication: ACNE
     Dosage: UNK
     Route: 065

REACTIONS (8)
  - Hyperammonaemia [Unknown]
  - Human herpesvirus 6 infection reactivation [Recovering/Resolving]
  - Drug reaction with eosinophilia and systemic symptoms [Recovering/Resolving]
  - Hepatic encephalopathy [Recovering/Resolving]
  - Renal impairment [Recovering/Resolving]
  - Acute hepatic failure [Recovering/Resolving]
  - Hypotension [Recovering/Resolving]
  - Hyperlactacidaemia [Unknown]
